FAERS Safety Report 14778504 (Version 1)
Quarter: 2018Q2

REPORT INFORMATION
  Report Type: Spontaneous
  Country: SG (occurrence: SG)
  Receive Date: 20180419
  Receipt Date: 20180419
  Transmission Date: 20180711
  Serious: Yes (Other)
  Sender: FDA-Public Use
  Company Number: IND-SG-009507513-1804SGP004861

PATIENT
  Age: 33 Year
  Sex: Female

DRUGS (1)
  1. ARCOXIA [Suspect]
     Active Substance: ETORICOXIB
     Route: 048

REACTIONS (3)
  - Blister [Unknown]
  - Pharyngeal erosion [Unknown]
  - Fixed eruption [Unknown]

NARRATIVE: CASE EVENT DATE: 20170101
